FAERS Safety Report 15537642 (Version 4)
Quarter: 2019Q1

REPORT INFORMATION
  Report Type: Spontaneous
  Country: US (occurrence: US)
  Receive Date: 20181022
  Receipt Date: 20190130
  Transmission Date: 20190417
  Serious: No
  Sender: FDA-Public Use
  Company Number: US-BIOGEN-2018BI00647436

PATIENT
  Sex: Female

DRUGS (1)
  1. TYSABRI [Suspect]
     Active Substance: NATALIZUMAB
     Indication: MULTIPLE SCLEROSIS
     Route: 065
     Dates: start: 20160715

REACTIONS (7)
  - Memory impairment [Unknown]
  - Amnesia [Unknown]
  - Pain [Unknown]
  - Confusional state [Unknown]
  - Product dose omission [Unknown]
  - Cognitive disorder [Not Recovered/Not Resolved]
  - Gait disturbance [Unknown]
